FAERS Safety Report 15625332 (Version 1)
Quarter: 2018Q4

REPORT INFORMATION
  Report Type: Spontaneous
  Country: US (occurrence: US)
  Receive Date: 20181112
  Receipt Date: 20181112
  Transmission Date: 20190205
  Serious: Yes (Life-Threatening, Hospitalization)
  Sender: FDA-Public Use
  Company Number: None

PATIENT
  Age: 38 Year
  Sex: Male
  Weight: 117 kg

DRUGS (2)
  1. CLOZAPINE (MYLAN) [Suspect]
     Active Substance: CLOZAPINE
     Indication: MYOCARDITIS
     Route: 048
     Dates: start: 20130130, end: 20130219
  2. QUETIAPINE. [Suspect]
     Active Substance: QUETIAPINE
     Route: 048
     Dates: start: 20121211

REACTIONS (6)
  - Dyspnoea [None]
  - Syncope [None]
  - Dizziness [None]
  - Tachycardia [None]
  - Myocarditis [None]
  - Hypotension [None]

NARRATIVE: CASE EVENT DATE: 20130219
